FAERS Safety Report 6915410-8 (Version None)
Quarter: 2010Q3

REPORT INFORMATION
  Report Type: 
  Country: None (occurrence: None)
  Receive Date: 20100809
  Receipt Date: 20100519
  Transmission Date: 20110219
  Serious: No
  Sender: FDA-Public Use
  Company Number: US-ABBOTT-10P-163-0640877-00

PATIENT
  Sex: Female
  Weight: 68.1 kg

DRUGS (7)
  1. DEPAKOTE ER [Suspect]
     Indication: MIGRAINE
     Dates: start: 20030101
  2. DEPAKOTE ER [Suspect]
     Indication: CONVULSION
  3. CYMBALTA [Concomitant]
     Indication: DEPRESSION
     Dosage: 60 MG IN MORNING AND 30 MG AT NIGHT
  4. LAMICTAL [Concomitant]
     Indication: CONVULSION
  5. LAMICTAL [Concomitant]
     Indication: MIGRAINE
  6. TRAZODONE [Concomitant]
     Indication: PRODUCT USED FOR UNKNOWN INDICATION
  7. KLONOPIN [Concomitant]
     Indication: PRODUCT USED FOR UNKNOWN INDICATION

REACTIONS (2)
  - AMNESIA [None]
  - CONTUSION [None]
